FAERS Safety Report 22059254 (Version 2)
Quarter: 2023Q1

REPORT INFORMATION
  Report Type: Other
  Country: US (occurrence: None)
  Receive Date: 20230303
  Receipt Date: 20230313
  Transmission Date: 20230418
  Serious: Yes (Hospitalization)
  Sender: FDA-Public Use
  Company Number: US-ROCHE-3296859

PATIENT
  Age: 58 Year
  Sex: Female

DRUGS (1)
  1. OCREVUS [Suspect]
     Active Substance: OCRELIZUMAB
     Indication: Relapsing multiple sclerosis
     Dosage: DATE OF TREATMENT MENTIONED 17-NOV-2021, 23-JUN-2022
     Route: 042

REACTIONS (12)
  - Decubitus ulcer [Unknown]
  - Infected skin ulcer [Unknown]
  - Photophobia [Unknown]
  - Incontinence [Unknown]
  - Tension headache [Unknown]
  - Back pain [Unknown]
  - Muscle spasms [Unknown]
  - Muscular weakness [Unknown]
  - Coordination abnormal [Unknown]
  - Gait disturbance [Unknown]
  - Asthenia [Unknown]
  - Anxiety [Unknown]
